FAERS Safety Report 4947116-9 (Version None)
Quarter: 2006Q1

REPORT INFORMATION
  Report Type: 
  Country: None (occurrence: None)
  Receive Date: 20060314
  Receipt Date: 20060228
  Transmission Date: 20060701
  Serious: No
  Sender: FDA-Public Use
  Company Number: CC06-014

PATIENT
  Age: 75 Year
  Sex: Male

DRUGS (5)
  1. ALBUTEROL [Suspect]
     Indication: ASBESTOSIS
     Dosage: 2 PUFFS, 6X DAILY PRN
  2. ALBUTEROL [Suspect]
     Indication: ASTHMA
     Dosage: 2 PUFFS, 6X DAILY PRN
  3. DIOVAN [Concomitant]
  4. LIPITOR [Concomitant]
  5. PLAVIX [Concomitant]

REACTIONS (1)
  - DRUG INEFFECTIVE [None]
